FAERS Safety Report 5615051-9 (Version None)
Quarter: 2008Q1

REPORT INFORMATION
  Report Type: 
  Country: None (occurrence: None)
  Receive Date: 20080205
  Receipt Date: 20080205
  Transmission Date: 20080703
  Serious: Yes (Other)
  Sender: FDA-Public Use
  Company Number: None

PATIENT
  Age: 6 Year
  Sex: Male
  Weight: 36.2878 kg

DRUGS (2)
  1. CHILDREN'S MOTRIN [Suspect]
     Indication: CHILLS
     Dosage: 10ML, I.E. 200MG A SINGLE DOSE PO
     Route: 048
     Dates: start: 20080201, end: 20080201
  2. CHILDREN'S MOTRIN [Suspect]
     Indication: PYREXIA
     Dosage: 10ML, I.E. 200MG A SINGLE DOSE PO
     Route: 048
     Dates: start: 20080201, end: 20080201

REACTIONS (3)
  - LIP DISORDER [None]
  - LIP SWELLING [None]
  - OEDEMA PERIPHERAL [None]
